FAERS Safety Report 20759213 (Version 1)
Quarter: 2022Q2

REPORT INFORMATION
  Report Type: Spontaneous
  Country: US (occurrence: US)
  Receive Date: 20220427
  Receipt Date: 20220427
  Transmission Date: 20220721
  Serious: No
  Sender: FDA-Public Use
  Company Number: US-BioHaven Pharmaceuticals-2022BHV000045

PATIENT
  Age: 35 Year

DRUGS (2)
  1. NURTEC ODT [Suspect]
     Active Substance: RIMEGEPANT SULFATE
     Indication: Headache
     Dosage: ACUTE DOSING?THE PATIENT WAS ON THE PREVENTATIVE DOSE OF NURTEC AND  PRIOR TO THAT, THE PATIENT WAS
     Route: 065
  2. NURTEC ODT [Suspect]
     Active Substance: RIMEGEPANT SULFATE
     Dosage: PREVENTATIVE DOSE?THE PATIENT WAS ON THE PREVENTATIVE DOSE OF NURTEC AND  PRIOR TO THAT, THE PATIENT
     Route: 065

REACTIONS (1)
  - Drug ineffective [Unknown]
